FAERS Safety Report 13638566 (Version 1)
Quarter: 2017Q2

REPORT INFORMATION
  Report Type: Spontaneous
  Country: IN (occurrence: IN)
  Receive Date: 20170609
  Receipt Date: 20170609
  Transmission Date: 20170830
  Serious: Yes (Hospitalization)
  Sender: FDA-Public Use
  Company Number: PHHY2017IN082430

PATIENT
  Age: 67 Year
  Weight: 65 kg

DRUGS (9)
  1. HIFENAC [Concomitant]
     Indication: PAIN
     Dosage: UNK UNK, QD
     Route: 048
     Dates: start: 20170505, end: 20170519
  2. AUGMENTIN [Concomitant]
     Active Substance: AMOXICILLIN\CLAVULANATE POTASSIUM
     Indication: ANTIBIOTIC THERAPY
     Dosage: 625 MG, QD
     Route: 048
     Dates: start: 20170505, end: 20170519
  3. ACLASTA [Suspect]
     Active Substance: ZOLEDRONIC ACID
     Indication: OSTEOPOROSIS
     Dosage: 5 MG, UNK
     Route: 041
     Dates: start: 20170326
  4. MIACALCIN [Concomitant]
     Active Substance: CALCITONIN SALMON
     Indication: MINERAL SUPPLEMENTATION
     Dosage: UNK UNK, QD
     Route: 055
     Dates: start: 20170602
  5. VITAMIN B12 [Concomitant]
     Active Substance: CYANOCOBALAMIN
     Indication: VITAMIN SUPPLEMENTATION
     Dosage: UNK UNK, BID
     Route: 048
     Dates: start: 20170519
  6. OROFER [Concomitant]
     Indication: MINERAL SUPPLEMENTATION
     Dosage: UNK UNK, QD
     Route: 048
     Dates: start: 20170506
  7. TELMA AM [Concomitant]
     Indication: HYPERTENSION
     Dosage: 5 MG, QD
     Route: 048
     Dates: end: 20170519
  8. PAN D [Concomitant]
     Indication: ANTACID THERAPY
     Dosage: 40 MG, QD
     Route: 048
     Dates: start: 20170505, end: 20170519
  9. CAD [Concomitant]
     Active Substance: CALCIUM CARBONATE\CHOLECALCIFEROL
     Indication: MINERAL SUPPLEMENTATION
     Dosage: UNK UNK, QD
     Route: 048
     Dates: start: 20170519

REACTIONS (2)
  - Fall [Unknown]
  - Femur fracture [Recovering/Resolving]

NARRATIVE: CASE EVENT DATE: 20170429
